FAERS Safety Report 13815282 (Version 1)
Quarter: 2017Q3

REPORT INFORMATION
  Report Type: Spontaneous
  Country: FR (occurrence: FR)
  Receive Date: 20170731
  Receipt Date: 20170731
  Transmission Date: 20171127
  Serious: Yes (Hospitalization)
  Sender: FDA-Public Use
  Company Number: FR-INCYTE CORPORATION-2017IN005855

PATIENT

DRUGS (3)
  1. JAKAVI [Suspect]
     Active Substance: RUXOLITINIB
     Indication: PRIMARY MYELOFIBROSIS
     Dosage: 35 MG, QD (20 MG IN THE MORNING, 15 MG IN THE EVENING)
     Route: 048
     Dates: start: 201607, end: 201611
  2. JAKAVI [Suspect]
     Active Substance: RUXOLITINIB
     Dosage: 30 MG, QD (15 MG IN THE MORNING, 15 MG IN THE EVENING)
     Route: 048
     Dates: start: 201704, end: 201706
  3. JAKAVI [Suspect]
     Active Substance: RUXOLITINIB
     Dosage: 40 MG, QD (20 MG IN THE MORNING, 20 MG IN THE EVENING)
     Route: 048
     Dates: start: 201611, end: 201704

REACTIONS (1)
  - Acute lymphocytic leukaemia [Not Recovered/Not Resolved]

NARRATIVE: CASE EVENT DATE: 20170629
